FAERS Safety Report 7576837-7 (Version None)
Quarter: 2011Q2

REPORT INFORMATION
  Report Type: 
  Country: None (occurrence: None)
  Receive Date: 20110628
  Receipt Date: 20110620
  Transmission Date: 20111010
  Serious: Yes (Other)
  Sender: FDA-Public Use
  Company Number: US-CEPHALON-2011003198

PATIENT
  Age: 74 Year
  Sex: Female

DRUGS (2)
  1. PROVIGIL [Suspect]
     Indication: DEPRESSION
  2. PROVIGIL [Suspect]
     Indication: FATIGUE
     Route: 048

REACTIONS (2)
  - MENTAL DISORDER [None]
  - ANXIETY [None]
